FAERS Safety Report 4425262-6 (Version None)
Quarter: 2004Q3

REPORT INFORMATION
  Report Type: 
  Country: None (occurrence: None)
  Receive Date: 20040813
  Receipt Date: 20040803
  Transmission Date: 20050211
  Serious: Yes (Life-Threatening, Hospitalization, Disabling, Other)
  Sender: FDA-Public Use
  Company Number: US-MERCK-0408USA00205

PATIENT
  Age: 60 Year
  Sex: Female
  Weight: 45 kg

DRUGS (8)
  1. ULTRACET [Concomitant]
     Indication: BACK PAIN
     Route: 048
     Dates: start: 20031008
  2. NORFLEX [Concomitant]
     Indication: MUSCLE SPASMS
     Route: 048
     Dates: start: 20030320
  3. PROTONIX [Concomitant]
     Indication: ABDOMINAL DISCOMFORT
     Route: 048
     Dates: start: 20031029
  4. VIOXX [Suspect]
     Indication: BACK PAIN
     Route: 048
     Dates: start: 20030619
  5. VIOXX [Suspect]
     Route: 048
     Dates: end: 20040707
  6. ZANAFLEX [Concomitant]
     Indication: MUSCLE SPASMS
     Route: 048
     Dates: start: 20031029
  7. EFFEXOR XR [Concomitant]
     Indication: DEPRESSION
     Route: 048
     Dates: start: 20031029
  8. EFFEXOR XR [Concomitant]
     Indication: MOOD ALTERED
     Route: 048
     Dates: start: 20031029

REACTIONS (2)
  - BLOOD PRESSURE INCREASED [None]
  - CEREBROVASCULAR ACCIDENT [None]
